FAERS Safety Report 8235479-0 (Version None)
Quarter: 2012Q1

REPORT INFORMATION
  Report Type: 
  Country: None (occurrence: None)
  Receive Date: 20120326
  Receipt Date: 20120320
  Transmission Date: 20120608
  Serious: No
  Sender: FDA-Public Use
  Company Number: US-PFIZER INC-2012073514

PATIENT

DRUGS (2)
  1. NORVASC [Suspect]
     Dosage: 5 MG, UNK
  2. DIOVAN HCT [Suspect]
     Dosage: 320

REACTIONS (3)
  - WEIGHT INCREASED [None]
  - ALOPECIA [None]
  - LOSS OF LIBIDO [None]
